FAERS Safety Report 22920829 (Version 2)
Quarter: 2023Q4

REPORT INFORMATION
  Report Type: Spontaneous
  Country: US (occurrence: None)
  Receive Date: 20230908
  Receipt Date: 20231124
  Transmission Date: 20240110
  Serious: Yes (Hospitalization)
  Sender: FDA-Public Use
  Company Number: US-FARMAPROD-202304-1209

PATIENT
  Sex: Female
  Weight: 96.248 kg

DRUGS (42)
  1. OXERVATE [Suspect]
     Active Substance: CENEGERMIN-BKBJ
     Indication: Neurotrophic keratopathy
     Route: 047
     Dates: start: 20230419, end: 20230614
  2. OXERVATE [Suspect]
     Active Substance: CENEGERMIN-BKBJ
     Route: 047
     Dates: start: 20231018
  3. TIMOLOL MALEATE [Concomitant]
     Active Substance: TIMOLOL MALEATE
  4. TOBRAMYCIN [Concomitant]
     Active Substance: TOBRAMYCIN
  5. PREDNISOLONE-NEPAFENAC [Concomitant]
  6. TERCONAZOLE [Concomitant]
     Active Substance: TERCONAZOLE
     Dosage: CREAM WITH APPLICATOR
  7. PSYLLIUM FIBER [Concomitant]
  8. PANTOPRAZOLE SODIUM [Concomitant]
     Active Substance: PANTOPRAZOLE SODIUM
  9. OXYBUTYNIN CHLORIDE [Concomitant]
     Active Substance: OXYBUTYNIN CHLORIDE
  10. OMEGA-3 ACIDS [Concomitant]
     Active Substance: OMEGA-3 FATTY ACIDS
  11. NYSTATIN\TRIAMCINOLONE [Concomitant]
     Active Substance: NYSTATIN\TRIAMCINOLONE
  12. NITROGLYCERIN [Concomitant]
     Active Substance: NITROGLYCERIN
  13. MUPIROCIN [Concomitant]
     Active Substance: MUPIROCIN
  14. VITAMINS [Concomitant]
     Active Substance: VITAMINS
  15. METOPROLOL TARTRATE [Concomitant]
     Active Substance: METOPROLOL TARTRATE
  16. METHYLPREDNISOLONE [Concomitant]
     Active Substance: METHYLPREDNISOLONE
     Dosage: DOSE PACK
  17. MENTHOL-CAMPHOR [Concomitant]
     Dosage: 10 %-4 %
  18. LOSARTAN POTASSIUM [Concomitant]
     Active Substance: LOSARTAN POTASSIUM
  19. IBUPROFEN [Concomitant]
     Active Substance: IBUPROFEN
  20. ACETAMINOPHEN\HYDROCODONE [Concomitant]
     Active Substance: ACETAMINOPHEN\HYDROCODONE
  21. GYMNEMA SYLVESTRIS LEAF [Concomitant]
  22. TEA LEAF [Concomitant]
     Active Substance: TEA LEAF
  23. GLIPIZIDE [Concomitant]
     Active Substance: GLIPIZIDE
  24. ASIAN GINSENG [Concomitant]
     Active Substance: ASIAN GINSENG
  25. GINGER [Concomitant]
     Active Substance: GINGER
  26. FUROSEMIDE [Concomitant]
     Active Substance: FUROSEMIDE
  27. FLUTICASONE PROPIONATE [Concomitant]
     Active Substance: FLUTICASONE PROPIONATE
  28. FLUCONAZOLE [Concomitant]
     Active Substance: FLUCONAZOLE
  29. FENUGREEK SEED [Concomitant]
     Active Substance: FENUGREEK SEED
  30. ESTRADIOL [Concomitant]
     Active Substance: ESTRADIOL
     Dosage: WITH APPLICATOR.
  31. ERYTHROMYCIN [Concomitant]
     Active Substance: ERYTHROMYCIN
  32. DICLOFENAC SODIUM [Concomitant]
     Active Substance: DICLOFENAC\DICLOFENAC SODIUM
  33. COLCHICINE [Concomitant]
     Active Substance: COLCHICINE
  34. CLOBETASOL EMOLLIENT [Concomitant]
  35. CHROMIUM [Concomitant]
     Active Substance: CHROMIC CHLORIDE\CHROMIUM
  36. CALCIUM\CHOLECALCIFEROL [Concomitant]
     Active Substance: CALCIUM\CHOLECALCIFEROL
     Dosage: 600MG-12.5
  37. IODOSORB [Concomitant]
     Active Substance: CADEXOMER IODINE
  38. BRILINTA [Concomitant]
     Active Substance: TICAGRELOR
  39. ATORVASTATIN CALCIUM [Concomitant]
     Active Substance: ATORVASTATIN CALCIUM
  40. ASPIRIN [Concomitant]
     Active Substance: ASPIRIN
  41. AMLODIPINE BESYLATE [Concomitant]
     Active Substance: AMLODIPINE BESYLATE
  42. ALLOPURINOL [Concomitant]
     Active Substance: ALLOPURINOL

REACTIONS (10)
  - Bacterial infection [Recovering/Resolving]
  - Sepsis [Recovering/Resolving]
  - COVID-19 [Recovered/Resolved]
  - Diarrhoea [Recovered/Resolved]
  - Swelling of eyelid [Unknown]
  - Eye irritation [Unknown]
  - Vision blurred [Unknown]
  - Lacrimation increased [Unknown]
  - Device use issue [Unknown]
  - Wrong technique in product usage process [Unknown]
